FAERS Safety Report 9097871 (Version 5)
Quarter: 2013Q2

REPORT INFORMATION
  Report Type: Spontaneous
  Country: US (occurrence: US)
  Receive Date: 20130212
  Receipt Date: 20130522
  Transmission Date: 20140414
  Serious: Yes (Other)
  Sender: FDA-Public Use
  Company Number: US-009507513-1302USA003525

PATIENT
  Age: 29 Year
  Sex: Female
  Weight: 46.26 kg

DRUGS (1)
  1. IMPLANON [Suspect]
     Indication: CONTRACEPTION
     Dosage: 1 DF, UNK
     Route: 059
     Dates: start: 20110304, end: 20130315

REACTIONS (5)
  - Medical device complication [Recovered/Resolved]
  - Device difficult to use [Recovered/Resolved]
  - No adverse event [Unknown]
  - General anaesthesia [Recovered/Resolved]
  - Device dislocation [Recovered/Resolved]
